FAERS Safety Report 4847747-0 (Version None)
Quarter: 2005Q4

REPORT INFORMATION
  Report Type: 
  Country: None (occurrence: None)
  Receive Date: 20051207
  Receipt Date: 20051118
  Transmission Date: 20060501
  Serious: Yes (Other)
  Sender: FDA-Public Use
  Company Number: JP-MERCK-0511USA03613

PATIENT
  Age: 84 Year
  Sex: Female

DRUGS (4)
  1. PRIMAXIN [Suspect]
     Indication: PNEUMONIA
     Route: 041
     Dates: start: 20051109, end: 20051114
  2. NORVASC [Concomitant]
     Route: 048
     Dates: end: 20051114
  3. OLMETIC [Concomitant]
     Route: 048
     Dates: end: 20051114
  4. FRANDOL TAPE S [Concomitant]
     Route: 058

REACTIONS (5)
  - CEREBRAL INFARCTION [None]
  - CONVULSION [None]
  - DEPRESSED LEVEL OF CONSCIOUSNESS [None]
  - DIPLEGIA [None]
  - LOSS OF CONSCIOUSNESS [None]
